FAERS Safety Report 4435129-5 (Version None)
Quarter: 2004Q3

REPORT INFORMATION
  Report Type: 
  Country: None (occurrence: None)
  Receive Date: 20040826
  Receipt Date: 20040819
  Transmission Date: 20050211
  Serious: Yes (Other)
  Sender: FDA-Public Use
  Company Number: GBWYE091809APR03

PATIENT
  Age: 11 Year
  Sex: Female

DRUGS (1)
  1. MINOCIN [Suspect]
     Indication: ACNE VARIOLIFORMIS
     Dosage: 50MG DAILY ORAL
     Route: 048
     Dates: start: 20030201, end: 20030228

REACTIONS (3)
  - DIPLOPIA [None]
  - INTRACRANIAL PRESSURE INCREASED [None]
  - PAPILLOEDEMA [None]
